FAERS Safety Report 11326489 (Version 1)
Quarter: 2015Q3

REPORT INFORMATION
  Report Type: Spontaneous
  Country: US (occurrence: US)
  Receive Date: 20150731
  Receipt Date: 20150731
  Transmission Date: 20151125
  Serious: No
  Sender: FDA-Public Use
  Company Number: US-ROCHE-1428966

PATIENT
  Age: 26 Year
  Sex: Male

DRUGS (1)
  1. PEGASYS [Suspect]
     Active Substance: PEGINTERFERON ALFA-2A
     Indication: HEPATITIS C
     Dosage: STRENGTH: 180 MCG/0.5 ML
     Route: 058

REACTIONS (3)
  - Fatigue [Unknown]
  - Memory impairment [Unknown]
  - Depression [Unknown]
